FAERS Safety Report 5748245-2 (Version None)
Quarter: 2008Q2

REPORT INFORMATION
  Report Type: 
  Country: None (occurrence: None)
  Receive Date: 20080523
  Receipt Date: 20080515
  Transmission Date: 20081010
  Serious: Yes (Death)
  Sender: FDA-Public Use
  Company Number: AU-ALLERGAN-0805884US

PATIENT
  Sex: Female

DRUGS (17)
  1. BOTOX [Suspect]
     Indication: PELVIC PAIN
     Dosage: UNK, SINGLE
     Route: 030
     Dates: start: 20020418, end: 20020418
  2. BLINDED BOTULINUM TOXIN TYPE A - GENERAL [Suspect]
     Indication: PELVIC PAIN
     Dosage: UNK, SINGLE
     Route: 030
     Dates: start: 20020418, end: 20020418
  3. BOTOX [Suspect]
     Dosage: UNK, SINGLE
     Route: 030
     Dates: start: 20021030, end: 20021031
  4. BLINDED BOTULINUM TOXIN TYPE A - GENERAL [Suspect]
     Dosage: UNK, SINGLE
     Route: 030
     Dates: start: 20021030, end: 20021031
  5. BOTOX [Suspect]
     Dosage: UNK, SINGLE
     Route: 030
     Dates: start: 20030328, end: 20030328
  6. BLINDED BOTULINUM TOXIN TYPE A - GENERAL [Suspect]
     Dosage: UNK, SINGLE
     Route: 030
     Dates: start: 20030328, end: 20030328
  7. BOTOX [Suspect]
     Dosage: UNK, SINGLE
     Route: 030
     Dates: start: 20030711, end: 20030711
  8. BLINDED BOTULINUM TOXIN TYPE A - GENERAL [Suspect]
     Dosage: UNK, SINGLE
     Route: 030
     Dates: start: 20030711, end: 20030711
  9. BOTOX [Suspect]
     Dosage: UNK, SINGLE
     Route: 030
     Dates: start: 20040618, end: 20040618
  10. BLINDED BOTULINUM TOXIN TYPE A - GENERAL [Suspect]
     Dosage: UNK, SINGLE
     Route: 030
     Dates: start: 20040618, end: 20040618
  11. BOTOX [Suspect]
     Dosage: UNK, SINGLE
     Route: 030
     Dates: start: 20050513, end: 20050513
  12. BLINDED BOTULINUM TOXIN TYPE A - GENERAL [Suspect]
     Dosage: UNK, SINGLE
     Route: 030
     Dates: start: 20050513, end: 20050513
  13. BOTOX [Suspect]
     Dosage: UNK, SINGLE
     Route: 030
     Dates: start: 20051202, end: 20051202
  14. BLINDED BOTULINUM TOXIN TYPE A - GENERAL [Suspect]
     Dosage: UNK, SINGLE
     Route: 030
     Dates: start: 20051202, end: 20051202
  15. BOTOX [Suspect]
     Dosage: UNK, SINGLE
     Route: 030
     Dates: start: 20060609, end: 20060609
  16. BLINDED BOTULINUM TOXIN TYPE A - GENERAL [Suspect]
     Dosage: UNK, SINGLE
     Route: 030
     Dates: start: 20060609, end: 20060609
  17. BOTOX [Suspect]
     Indication: PELVIC PAIN
     Dates: start: 20070808, end: 20070808

REACTIONS (4)
  - ACCIDENTAL OVERDOSE [None]
  - ACUTE HEPATIC FAILURE [None]
  - BRAIN OEDEMA [None]
  - BRAIN STEM INFARCTION [None]
